FAERS Safety Report 11131338 (Version 1)
Quarter: 2015Q2

REPORT INFORMATION
  Report Type: Report from Study
  Country: US (occurrence: US)
  Receive Date: 20150522
  Receipt Date: 20150522
  Transmission Date: 20150821
  Serious: No
  Sender: FDA-Public Use
  Company Number: US-AMGEN-USASL2015048110

PATIENT
  Age: 69 Year
  Sex: Male

DRUGS (1)
  1. ENBREL [Suspect]
     Active Substance: ETANERCEPT
     Indication: PSORIATIC ARTHROPATHY
     Dosage: UNK MG, QWK
     Route: 065
     Dates: start: 20150201, end: 20150215

REACTIONS (5)
  - Joint swelling [Recovered/Resolved]
  - Skin discolouration [Not Recovered/Not Resolved]
  - Localised infection [Recovered/Resolved]
  - Injection site vesicles [Not Recovered/Not Resolved]
  - Injection site discolouration [Not Recovered/Not Resolved]

NARRATIVE: CASE EVENT DATE: 201502
